FAERS Safety Report 4262057-0 (Version None)
Quarter: 2004Q1

REPORT INFORMATION
  Report Type: 
  Country: None (occurrence: None)
  Receive Date: 20040102
  Receipt Date: 20031003
  Transmission Date: 20041129
  Serious: Yes (Death)
  Sender: FDA-Public Use
  Company Number: BE-GLAXOSMITHKLINE-B0310851A

PATIENT
  Age: 89 Year
  Sex: Female

DRUGS (5)
  1. AMOXICILLIN AND CLAVULANATE POTASSIUM [Suspect]
     Indication: BODY TEMPERATURE INCREASED
     Dosage: 500MG THREE TIMES PER DAY
     Route: 048
     Dates: start: 20030730, end: 20030803
  2. MOLSIDOMINE [Concomitant]
     Dosage: 16MG PER DAY
     Route: 048
     Dates: start: 20030307
  3. OMEPRAZOLE [Concomitant]
     Dosage: 20MG PER DAY
     Route: 048
     Dates: start: 20030227
  4. OLANZAPINE [Concomitant]
     Dosage: 10MG PER DAY
     Route: 048
     Dates: start: 20030307
  5. MOVICOL [Concomitant]
     Dosage: 1SAC PER DAY
     Route: 048
     Dates: start: 20030617

REACTIONS (7)
  - ALANINE AMINOTRANSFERASE INCREASED [None]
  - ASPARTATE AMINOTRANSFERASE INCREASED [None]
  - BLOOD CREATINE PHOSPHOKINASE INCREASED [None]
  - BLOOD LACTATE DEHYDROGENASE INCREASED [None]
  - HEPATITIS ACUTE [None]
  - RENAL FAILURE ACUTE [None]
  - SHOCK [None]
